FAERS Safety Report 10537701 (Version 1)
Quarter: 2014Q4

REPORT INFORMATION
  Report Type: Spontaneous
  Country: SE (occurrence: None)
  Receive Date: 20141021
  Receipt Date: 20141021
  Transmission Date: 20150529
  Serious: Yes (Hospitalization)
  Sender: FDA-Public Use
  Company Number: FK201404114

PATIENT
  Age: 82 Year
  Sex: Male

DRUGS (3)
  1. METHOTREXATE (MANUFACTURER UNKNOWN) (METHOTREXATE) (METHOTREXATE) [Suspect]
     Active Substance: METHOTREXATE
     Indication: RHEUMATOID ARTHRITIS
  2. PREDNISOLONE (PREDNISOLONE) [Suspect]
     Active Substance: PREDNISOLONE
     Indication: RHEUMATOID ARTHRITIS
     Route: 048
  3. METHYLPREDNISOLONE (MANUFACTURER UNKNOWN) (METHYLPREDNISOLONE SODIUM SUCCINATE) (METHYLPREDNISOLONE SODIUM SUCCINATE) [Suspect]
     Active Substance: METHYLPREDNISOLONE
     Indication: RHEUMATOID ARTHRITIS
     Route: 014

REACTIONS (3)
  - Abscess limb [None]
  - Soft tissue infection [None]
  - Legionella infection [None]
